FAERS Safety Report 7728091 (Version 4)
Quarter: 2013Q1

REPORT INFORMATION
  Report Type: Report from Study
  Country: JP (occurrence: JP)
  Receive Date: 20101222
  Receipt Date: 20130213
  Transmission Date: 20140127
  Serious: Yes (Hospitalization, Other)
  Sender: FDA-Public Use
  Company Number: PHHY2010JP66887

PATIENT
  Sex: 0

DRUGS (14)
  1. AMN107 [Suspect]
     Dosage: 400MG
     Route: 048
     Dates: start: 20091110, end: 20091112
  2. AMN107 [Suspect]
     Dosage: 400MG
     Route: 048
     Dates: start: 20100330, end: 20100413
  3. AMN107 [Suspect]
     Dosage: 200MG
     Route: 048
     Dates: start: 20100427, end: 20100525
  4. AMN107 [Suspect]
     Dosage: 200 MG DAILY
     Dates: start: 20100722
  5. GLIVEC [Concomitant]
     Indication: CHRONIC MYELOID LEUKAEMIA
     Dosage: 300MG
     Route: 048
     Dates: start: 20091124, end: 20100304
  6. GLIVEC [Concomitant]
     Dosage: UNK
     Dates: start: 20090403, end: 20091103
  7. CELESTAMINE [Concomitant]
     Indication: RASH
     Dosage: 1 DF
     Route: 048
     Dates: start: 20091215, end: 20100326
  8. HYDREA [Concomitant]
     Indication: CHRONIC MYELOID LEUKAEMIA
     Dosage: 1 DF
     Route: 048
     Dates: start: 20100608, end: 20100705
  9. MEVALOTIN [Concomitant]
     Indication: HYPERLIPIDAEMIA
     Dosage: 10MG
     Route: 048
     Dates: start: 20100622
  10. GASTER D [Concomitant]
     Dosage: 10MG
     Route: 048
     Dates: start: 20100622
  11. BAYASPIRIN [Concomitant]
     Indication: PROPHYLAXIS
     Dosage: 100 MG, UNK
     Route: 048
  12. SIGMART [Concomitant]
     Indication: PROPHYLAXIS
     Dosage: 15 MG, UNK
     Route: 048
  13. LASIX [Concomitant]
     Indication: PROPHYLAXIS
     Dosage: 20 MG, UNK
     Route: 048
  14. LOXONIN [Concomitant]
     Indication: PROPHYLAXIS
     Dosage: 60 MG, UNK
     Route: 048
     Dates: start: 20111227

REACTIONS (3)
  - Angina pectoris [Recovered/Resolved]
  - Coronary artery occlusion [Unknown]
  - Lipase increased [Recovered/Resolved]
